FAERS Safety Report 21647856 (Version 1)
Quarter: 2022Q4

REPORT INFORMATION
  Report Type: Report from Study
  Country: US (occurrence: US)
  Receive Date: 20221128
  Receipt Date: 20221128
  Transmission Date: 20230112
  Serious: No
  Sender: FDA-Public Use
  Company Number: US-ABBVIE-4175852

PATIENT
  Sex: Female

DRUGS (1)
  1. SKYRIZI [Suspect]
     Active Substance: RISANKIZUMAB-RZAA
     Indication: Psoriasis
     Dosage: SKYRIZI 150 MG/ML INJECT ONCE SUBCUTANEOUSLY (WEEK 0, WEEK 4, THEN EVERY 12 WEEKS).
     Dates: start: 20220917

REACTIONS (2)
  - Drug ineffective [Unknown]
  - Incorrect product administration duration [Unknown]

NARRATIVE: CASE EVENT DATE: 20220101
